FAERS Safety Report 8407030-3 (Version None)
Quarter: 2012Q2

REPORT INFORMATION
  Report Type: 
  Country: None (occurrence: None)
  Receive Date: 20120604
  Receipt Date: 20120601
  Transmission Date: 20120825
  Serious: Yes (Hospitalization)
  Sender: FDA-Public Use
  Company Number: US-ROCHE-1074422

PATIENT
  Sex: Female

DRUGS (1)
  1. ZELBORAF [Suspect]
     Indication: METASTATIC MALIGNANT MELANOMA

REACTIONS (6)
  - NAUSEA [None]
  - ASTHENIA [None]
  - FEBRILE NEUTROPENIA [None]
  - VOMITING [None]
  - DIARRHOEA [None]
  - DECREASED APPETITE [None]
